FAERS Safety Report 5255498-6 (Version None)
Quarter: 2007Q1

REPORT INFORMATION
  Report Type: 
  Country: None (occurrence: None)
  Receive Date: 20070228
  Receipt Date: 20070219
  Transmission Date: 20070707
  Serious: Yes (Disabling)
  Sender: FDA-Public Use
  Company Number: GXKR2007GB01765

PATIENT
  Age: 83 Year
  Sex: Female

DRUGS (7)
  1. FUROSEMIDE [Suspect]
     Indication: HYPERTENSION
     Dosage: 80 MG, ORAL
     Route: 048
     Dates: start: 19820901
  2. AMLODIPINE [Concomitant]
  3. ASPIRIN [Concomitant]
  4. BEZAFIBRATE (BEZAFIBRATE) [Concomitant]
  5. CALCICHEW (CALCIUM CARBONATE) [Concomitant]
  6. ISOSORBIDE MONONITRATE [Concomitant]
  7. SPIRONOLACTONE [Concomitant]

REACTIONS (5)
  - ABDOMINAL DISTENSION [None]
  - DIZZINESS [None]
  - MALAISE [None]
  - NAUSEA [None]
  - RENAL FAILURE [None]
